FAERS Safety Report 6157674-7 (Version None)
Quarter: 2009Q2

REPORT INFORMATION
  Report Type: 
  Country: None (occurrence: None)
  Receive Date: 20090416
  Receipt Date: 20090406
  Transmission Date: 20091009
  Serious: Yes (Hospitalization, Other)
  Sender: FDA-Public Use
  Company Number: DE-ABBOTT-09P-062-0567162-00

PATIENT
  Sex: Male

DRUGS (11)
  1. SEVOFLURANE [Suspect]
     Indication: ANAESTHESIA
     Dosage: 0.3-2%
  2. SEVOFLURANE [Suspect]
     Indication: OESOPHAGEAL ATRESIA
  3. MIDAZOLAM HCL [Concomitant]
     Indication: DRUG USE FOR UNKNOWN INDICATION
     Dosage: 0.5 MG (=0.21 MG/KG)
  4. FENTANYL [Concomitant]
     Indication: DRUG USE FOR UNKNOWN INDICATION
     Dosage: 5 MCG (=2.1 MCG/KG)
  5. ETOMIDATE [Concomitant]
     Indication: DRUG USE FOR UNKNOWN INDICATION
     Dosage: 2 ML (0.8 MG/KG)
  6. SUCCINYLCHOLINE CHLORIDE [Concomitant]
     Indication: DRUG USE FOR UNKNOWN INDICATION
     Dosage: 4 MG (=1.7 MG/KG)
  7. SUCCINYLCHOLINE CHLORIDE [Concomitant]
  8. BREVIMYTAL [Concomitant]
     Indication: DRUG USE FOR UNKNOWN INDICATION
  9. ULTIVA [Concomitant]
     Indication: DRUG USE FOR UNKNOWN INDICATION
  10. CISATRACURIUM [Concomitant]
     Indication: DRUG USE FOR UNKNOWN INDICATION
  11. SUCCINYLCHOLIN [Concomitant]
     Indication: DRUG USE FOR UNKNOWN INDICATION

REACTIONS (14)
  - ANAESTHETIC COMPLICATION PULMONARY [None]
  - ATELECTASIS [None]
  - CAPILLARY LEAK SYNDROME [None]
  - CEREBRAL ATROPHY [None]
  - CEREBRAL CYST [None]
  - CONVULSION [None]
  - DYSKINESIA [None]
  - HEART RATE DECREASED [None]
  - HYDROCEPHALUS [None]
  - HYPERBILIRUBINAEMIA [None]
  - HYPERTONIA [None]
  - MECHANICAL VENTILATION [None]
  - MENTAL RETARDATION [None]
  - OXYGEN SATURATION DECREASED [None]
